FAERS Safety Report 22538106 (Version 1)
Quarter: 2023Q2

REPORT INFORMATION
  Report Type: Spontaneous
  Country: JP (occurrence: JP)
  Receive Date: 20230608
  Receipt Date: 20230608
  Transmission Date: 20230722
  Serious: Yes (Other)
  Sender: FDA-Public Use
  Company Number: JP-002147023-NVSJ2023JP009053

PATIENT
  Sex: Female
  Weight: 2.128 kg

DRUGS (12)
  1. AMOXICILLIN [Suspect]
     Active Substance: AMOXICILLIN
     Indication: Foetal exposure during pregnancy
     Dosage: MATERNAL EXPOSURE DURING PREGNANCY:1500MG
     Route: 064
     Dates: start: 20181113, end: 20190211
  2. AMOXICILLIN [Suspect]
     Active Substance: AMOXICILLIN
     Dosage: MATERNAL EXPOSURE DURING PREGNANCY:1500MG
     Route: 064
  3. SODIUM FERROUS CITRATE [Suspect]
     Active Substance: SODIUM FERROUS CITRATE
     Indication: Foetal exposure during pregnancy
     Dosage: MATERNAL EXPOSURE DURING PREGNANCY:150MG
     Route: 064
     Dates: start: 20181113, end: 20181216
  4. IRON SUCROSE [Suspect]
     Active Substance: IRON SUCROSE
     Indication: Foetal exposure during pregnancy
     Dosage: MATERNAL EXPOSURE DURING PREGNANCY:80MG
     Route: 064
     Dates: start: 20181116, end: 20181216
  5. AZITHROMYCIN [Suspect]
     Active Substance: AZITHROMYCIN
     Indication: Foetal exposure during pregnancy
     Dosage: MATERNAL EXPOSURE DURING PREGNANCY:1000MG
     Route: 064
     Dates: start: 20181130, end: 20190524
  6. AZITHROMYCIN [Suspect]
     Active Substance: AZITHROMYCIN
     Dosage: MATERNAL EXPOSURE DURING PREGNANCY:1000MG
     Route: 064
  7. ASVERIN (TIPEPIDINE HIBENZATE) [Suspect]
     Active Substance: TIPEPIDINE HIBENZATE
     Indication: Foetal exposure during pregnancy
     Dosage: MATERNAL EXPOSURE DURING PREGNANCY:3 TABLETS
     Route: 064
     Dates: start: 20190111, end: 20190118
  8. MAGNESIUM OXIDE [Suspect]
     Active Substance: MAGNESIUM OXIDE
     Indication: Foetal exposure during pregnancy
     Dosage: MATERNAL EXPOSURE DURING PREGNANCY:990MG
     Route: 064
     Dates: start: 20190125, end: 20190505
  9. REBAMIPIDE [Suspect]
     Active Substance: REBAMIPIDE
     Indication: Foetal exposure during pregnancy
     Dosage: MATERNAL EXPOSURE DURING PREGNANCY:300MG
     Route: 064
     Dates: start: 20190222, end: 20190505
  10. BIO-THREE [Suspect]
     Active Substance: HERBALS
     Indication: Foetal exposure during pregnancy
     Dosage: MATERNAL EXPOSURE DURING PREGNANCY:3 TABLETS
     Route: 064
     Dates: start: 20190430, end: 20190507
  11. HERBALS [Suspect]
     Active Substance: HERBALS
     Indication: Foetal exposure during pregnancy
     Dosage: MATERNAL EXPOSURE DURING PREGNANCY:9G
     Route: 064
     Dates: start: 20190517, end: 20190524
  12. METRONIDAZOLE [Suspect]
     Active Substance: METRONIDAZOLE
     Indication: Foetal exposure during pregnancy
     Dosage: MATERNAL EXPOSURE DURING PREGNANCY:250MG
     Route: 064

REACTIONS (3)
  - Low birth weight baby [Unknown]
  - Foetal growth restriction [Unknown]
  - Foetal exposure during pregnancy [Unknown]
